FAERS Safety Report 20206835 (Version 1)
Quarter: 2021Q4

REPORT INFORMATION
  Report Type: Other
  Country: CA (occurrence: CA)
  Receive Date: 20211220
  Receipt Date: 20211220
  Transmission Date: 20220303
  Serious: Yes (Other)
  Sender: FDA-Public Use
  Company Number: CA-PFIZER INC-202101739638

PATIENT
  Age: 36 Year

DRUGS (2)
  1. TESTOSTERONE [Suspect]
     Active Substance: TESTOSTERONE
     Indication: Hormone therapy
     Route: 065
  2. TESTOSTERONE [Suspect]
     Active Substance: TESTOSTERONE
     Indication: Hormone therapy
     Route: 062

REACTIONS (1)
  - Endometrial adenocarcinoma [Unknown]
